FAERS Safety Report 24463551 (Version 1)
Quarter: 2024Q4

REPORT INFORMATION
  Report Type: Report from Study
  Country: US (occurrence: US)
  Receive Date: 20241018
  Receipt Date: 20241018
  Transmission Date: 20250115
  Serious: No
  Sender: ROCHE
  Company Number: US-ROCHE-3448400

PATIENT
  Age: 72 Year
  Sex: Male

DRUGS (18)
  1. XOLAIR [Suspect]
     Active Substance: OMALIZUMAB
     Indication: Peripheral vascular disorder
     Dosage: INFUSION DATES-12/OCT/2023, 16/OCT/2023, 12/SEP/2023, REFILL: 1 YEAR
     Route: 058
  2. XOLAIR [Suspect]
     Active Substance: OMALIZUMAB
     Indication: Asthma
  3. XOLAIR [Suspect]
     Active Substance: OMALIZUMAB
     Indication: Emphysema
  4. TRELEGY ELLIPTA [Concomitant]
     Active Substance: FLUTICASONE FUROATE\UMECLIDINIUM BROMIDE\VILANTEROL TRIFENATATE
  5. SINGULAIR [Concomitant]
     Active Substance: MONTELUKAST SODIUM
  6. BLEOMYCIN HYDROCHLORIDE [Concomitant]
     Active Substance: BLEOMYCIN HYDROCHLORIDE
  7. PROAIR HFA [Concomitant]
     Active Substance: ALBUTEROL SULFATE
  8. ADVAIR HFA [Concomitant]
     Active Substance: FLUTICASONE PROPIONATE\SALMETEROL XINAFOATE
  9. PERFOROMIST [Concomitant]
     Active Substance: FORMOTEROL FUMARATE DIHYDRATE
  10. POTASSIUM [Concomitant]
     Active Substance: POTASSIUM
  11. SPIRONOLACTONE [Concomitant]
     Active Substance: SPIRONOLACTONE
  12. VALSARTAN [Concomitant]
     Active Substance: VALSARTAN
  13. IBUPROFEN [Concomitant]
     Active Substance: IBUPROFEN
  14. ATORVASTATIN [Concomitant]
     Active Substance: ATORVASTATIN
  15. LEVOTHYROXINE [Concomitant]
     Active Substance: LEVOTHYROXINE
  16. LISINOPRIL [Concomitant]
     Active Substance: LISINOPRIL
  17. MELOXICAM [Concomitant]
     Active Substance: MELOXICAM
  18. IPRATROPIUM [Concomitant]
     Active Substance: IPRATROPIUM
     Route: 045

REACTIONS (2)
  - Off label use [Unknown]
  - No adverse event [Unknown]
